FAERS Safety Report 9887491 (Version 2)
Quarter: 2014Q1

REPORT INFORMATION
  Report Type: Spontaneous
  Country: US (occurrence: US)
  Receive Date: 20140211
  Receipt Date: 20140225
  Transmission Date: 20141002
  Serious: Yes (Hospitalization, Other)
  Sender: FDA-Public Use
  Company Number: US-009507513-1402USA001914

PATIENT
  Age: 49 Year
  Sex: Male

DRUGS (5)
  1. VICTRELIS [Suspect]
     Indication: HEPATITIS C
     Dosage: 200 MG/FOUR CAPSULES/EVERY EIGHT HOURS
     Route: 048
     Dates: start: 20130628, end: 20140111
  2. PEGASYS [Suspect]
     Indication: HEPATITIS C
     Dosage: UNK
     Dates: end: 201401
  3. RIBAVIRIN [Suspect]
     Dosage: UNK
     Route: 048
     Dates: end: 201401
  4. AMBIEN [Concomitant]
  5. VIAGRA [Concomitant]

REACTIONS (3)
  - Small intestinal obstruction [Unknown]
  - Post procedural sepsis [Unknown]
  - Surgery [Unknown]
